FAERS Safety Report 7786889-7 (Version None)
Quarter: 2011Q3

REPORT INFORMATION
  Report Type: 
  Country: None (occurrence: None)
  Receive Date: 20110929
  Receipt Date: 20110923
  Transmission Date: 20111222
  Serious: Yes (Other)
  Sender: FDA-Public Use
  Company Number: CA-PFIZER INC-2011217371

PATIENT
  Sex: Female

DRUGS (11)
  1. XALATAN [Suspect]
     Indication: GLAUCOMA
     Dosage: 1 GTT IN EACH EYE, 1X/DAY
     Route: 047
     Dates: start: 20010901
  2. ALLOPURINOL [Concomitant]
     Indication: GOUT
     Dosage: 1 DF, 1X/DAY
  3. QUININE [Concomitant]
     Indication: MUSCLE SPASMS
     Dosage: 1 DF, 1X/DAY
  4. MULTI-VITAMINS [Concomitant]
     Dosage: 1 DF, 1X/DAY
  5. TAMOXIFEN CITRATE [Suspect]
     Dosage: 20 MG DAILY
     Dates: start: 20060729, end: 20110819
  6. NAPROXEN [Concomitant]
     Indication: INFECTION
     Dosage: 2 DF, 1X/DAY
  7. ASPIRIN [Concomitant]
     Dosage: 81 MG, 1X/DAY IN THE MORNING
  8. CEPHALEXIN [Concomitant]
     Indication: CANDIDIASIS
     Dosage: 500 MG, UNK
  9. TRIAZIDE [Concomitant]
     Indication: FLUID RETENTION
     Dosage: 1 DF, 1X/DAY
  10. TIMOLOL [Concomitant]
     Indication: GLAUCOMA
     Dosage: 1 GTT IN THE RIGHT EYE, 1X/DAY (MORNING)
  11. LEVODOPA [Concomitant]
     Indication: MUSCLE SPASMS
     Dosage: 2 DF, 1X/DAY

REACTIONS (7)
  - WRIST FRACTURE [None]
  - ORAL CANDIDIASIS [None]
  - TREMOR [None]
  - MUSCLE SPASMS [None]
  - ARTHRITIS [None]
  - INFECTION [None]
  - ANAEMIA [None]
